FAERS Safety Report 23590802 (Version 2)
Quarter: 2024Q2

REPORT INFORMATION
  Report Type: Spontaneous
  Country: NL (occurrence: NL)
  Receive Date: 20240304
  Receipt Date: 20240408
  Transmission Date: 20240715
  Serious: Yes (Other)
  Sender: FDA-Public Use
  Company Number: NL-AMGEN-NLDSP2024040699

PATIENT

DRUGS (2)
  1. BEVACIZUMAB [Suspect]
     Active Substance: BEVACIZUMAB
     Indication: Colorectal cancer metastatic
     Dosage: 5 MILLIGRAM/KILOGRAM (CYCLE OF 28 DAYS)
     Route: 065
  2. TIPIRACIL HYDROCHLORIDE\TRIFLURIDINE [Suspect]
     Active Substance: TIPIRACIL HYDROCHLORIDE\TRIFLURIDINE
     Indication: Colorectal cancer metastatic
     Dosage: 35 MILLIGRAM/SQ. METER, BID (ON DAYS 1 TO 5 AND FROM DAY 8 TO 12 IN A CYCLE)
     Route: 048

REACTIONS (5)
  - Colorectal cancer metastatic [Unknown]
  - Neutropenia [Unknown]
  - Adverse event [Unknown]
  - Febrile neutropenia [Unknown]
  - Eastern Cooperative Oncology Group performance status worsened [Unknown]
